FAERS Safety Report 10285826 (Version 1)
Quarter: 2014Q3

REPORT INFORMATION
  Report Type: Spontaneous
  Country: US (occurrence: None)
  Receive Date: 20140703
  Receipt Date: 20140703
  Transmission Date: 20150326
  Serious: No
  Sender: FDA-Public Use
  Company Number: None

PATIENT
  Age: 87 Year
  Sex: Female
  Weight: 61.24 kg

DRUGS (4)
  1. VITAMIN C [Concomitant]
     Active Substance: ASCORBIC ACID
  2. METROPHO [Concomitant]
  3. LEVOFLOXACIN 500MG TABLETS WALGREENS [Suspect]
     Active Substance: LEVOFLOXACIN
     Indication: DIABETES MELLITUS
     Dosage: 500 MG PER TABLET, 1 PILL DAILY, 10 DAYS, ORALLY
     Route: 048
     Dates: start: 20140409, end: 20140507
  4. BENCRAY [Concomitant]

REACTIONS (6)
  - Nausea [None]
  - Constipation [None]
  - Pruritus [None]
  - Rash [None]
  - Pain in extremity [None]
  - Dizziness [None]

NARRATIVE: CASE EVENT DATE: 20140512
